FAERS Safety Report 13169642 (Version 1)
Quarter: 2017Q1

REPORT INFORMATION
  Report Type: Spontaneous
  Country: US (occurrence: US)
  Receive Date: 20170131
  Receipt Date: 20170131
  Transmission Date: 20170428
  Serious: No
  Sender: FDA-Public Use
  Company Number: US-ABBVIE-16K-163-1596526-00

PATIENT
  Age: 55 Year
  Sex: Female
  Weight: 50.35 kg

DRUGS (30)
  1. GLUCOSAMINE CONDROITIN [Concomitant]
     Indication: ARTHROPATHY
     Dosage: BEEN TAKING FOR YEARS
     Route: 048
     Dates: end: 2013
  2. LEVOTHYROXINE. [Concomitant]
     Active Substance: LEVOTHYROXINE
     Indication: HYPOTHYROIDISM
     Dosage: BEEN TAKING FOR YEARS
     Route: 048
     Dates: end: 2013
  3. NOVOLOG [Concomitant]
     Active Substance: INSULIN ASPART
     Indication: BLOOD GLUCOSE INCREASED
     Route: 050
     Dates: end: 2013
  4. XELJANZ [Suspect]
     Active Substance: TOFACITINIB CITRATE
     Indication: RHEUMATOID ARTHRITIS
     Route: 048
     Dates: start: 201602
  5. XELJANZ [Suspect]
     Active Substance: TOFACITINIB CITRATE
     Indication: BLOOD GLUCOSE INCREASED
  6. ENBREL [Suspect]
     Active Substance: ETANERCEPT
     Route: 065
     Dates: start: 201410
  7. CALCIUM CITRATE WITH VITAMIN D3 [Concomitant]
     Route: 048
     Dates: start: 201410
  8. OMEGA THREE FISH OIL [Concomitant]
     Indication: CARDIOVASCULAR EVENT PROPHYLAXIS
     Dates: start: 201410
  9. FOLIC ACID. [Concomitant]
     Active Substance: FOLIC ACID
     Indication: ADJUVANT THERAPY
     Dosage: SKIP ON THE DAY SHE TAKES METHOTREXATE, BEEN TAKING FOR YEARS
     Route: 048
     Dates: end: 2013
  10. DIAZEPAM. [Concomitant]
     Active Substance: DIAZEPAM
     Indication: SLEEP DISORDER
     Route: 048
     Dates: end: 2013
  11. BROMALINE [Concomitant]
     Indication: INFLAMMATION
     Dosage: BEEN TAKING FOR YEARS
     Route: 048
     Dates: end: 2013
  12. CALCIUM CITRATE WITH VITAMIN D3 [Concomitant]
     Indication: OSTEOPOROSIS
     Dosage: BEEN TAKING FOR YEARS
     Route: 048
     Dates: end: 2013
  13. FOLIC ACID. [Concomitant]
     Active Substance: FOLIC ACID
     Route: 048
     Dates: start: 201410
  14. GLUCOSAMINE CONDROITIN [Concomitant]
     Route: 048
     Dates: start: 201410
  15. LANTUS [Concomitant]
     Active Substance: INSULIN GLARGINE
     Indication: DIABETES MELLITUS
     Dosage: 100 UNIT/ML BEEN TAKING FOR YEARS
     Route: 050
     Dates: end: 2013
  16. TRAZODONE [Concomitant]
     Active Substance: TRAZODONE HYDROCHLORIDE
     Indication: SLEEP DISORDER
     Dosage: 100MG ONE BY MOUTH AT NIGHT
     Route: 048
     Dates: end: 2013
  17. METHOTREXATE. [Suspect]
     Active Substance: METHOTREXATE
     Route: 065
  18. EXCEDRIN MIGRAINE [Concomitant]
     Active Substance: ACETAMINOPHEN\ASPIRIN\CAFFEINE
     Route: 048
     Dates: start: 201410
  19. NOVOLOG [Concomitant]
     Active Substance: INSULIN ASPART
     Route: 050
     Dates: start: 201410
  20. BROMALINE [Concomitant]
     Route: 048
     Dates: start: 201410
  21. LEVOTHYROXINE. [Concomitant]
     Active Substance: LEVOTHYROXINE
     Route: 048
     Dates: start: 201410
  22. TRAZODONE [Concomitant]
     Active Substance: TRAZODONE HYDROCHLORIDE
     Route: 048
     Dates: start: 201410
  23. DIAZEPAM. [Concomitant]
     Active Substance: DIAZEPAM
     Route: 048
     Dates: start: 201410
  24. ENBREL [Suspect]
     Active Substance: ETANERCEPT
     Indication: PRODUCT USED FOR UNKNOWN INDICATION
     Route: 065
     Dates: end: 2013
  25. OMEGA THREE FISH OIL [Concomitant]
     Indication: ARTHROPATHY
     Dosage: BEEN TAKING FOR YEARS
     Dates: end: 2013
  26. LANTUS [Concomitant]
     Active Substance: INSULIN GLARGINE
     Route: 050
     Dates: start: 201410
  27. HUMIRA [Suspect]
     Active Substance: ADALIMUMAB
     Indication: PRODUCT USED FOR UNKNOWN INDICATION
     Route: 058
     Dates: end: 2013
  28. HUMIRA [Suspect]
     Active Substance: ADALIMUMAB
     Route: 058
     Dates: start: 201410
  29. METHOTREXATE. [Suspect]
     Active Substance: METHOTREXATE
     Indication: RHEUMATOID ARTHRITIS
     Dosage: BEEN TAKING FOR YEARS
     Route: 065
  30. EXCEDRIN MIGRAINE [Concomitant]
     Active Substance: ACETAMINOPHEN\ASPIRIN\CAFFEINE
     Indication: MOBILITY DECREASED
     Route: 048
     Dates: end: 2013

REACTIONS (12)
  - Fatigue [Not Recovered/Not Resolved]
  - Gastric disorder [Unknown]
  - Mass [Not Recovered/Not Resolved]
  - Anxiety [Unknown]
  - Secretion discharge [Not Recovered/Not Resolved]
  - Rheumatoid arthritis [Unknown]
  - Erythema [Not Recovered/Not Resolved]
  - Adverse drug reaction [Unknown]
  - Sleep disorder [Not Recovered/Not Resolved]
  - Alopecia [Unknown]
  - Rheumatoid arthritis [Unknown]
  - Pain [Not Recovered/Not Resolved]

NARRATIVE: CASE EVENT DATE: 201410
